FAERS Safety Report 8834547 (Version 1)
Quarter: 2012Q4

REPORT INFORMATION
  Report Type: 
  Country: BR (occurrence: BR)
  Receive Date: 20121010
  Receipt Date: 20121010
  Transmission Date: 20130627
  Serious: Yes (Hospitalization)
  Sender: FDA-Public Use
  Company Number: BR-ASTRAZENECA-2012SE76242

PATIENT
  Age: 895 Month
  Sex: Female
  Weight: 73 kg

DRUGS (14)
  1. ATACAND [Suspect]
     Indication: HYPERTENSION
     Route: 048
     Dates: end: 2004
  2. NEXIUM [Suspect]
     Indication: GASTRIC DISORDER
     Route: 048
     Dates: start: 2004, end: 2010
  3. ZESTORETIC [Suspect]
     Indication: HYPERTENSION
     Route: 048
  4. CRESTOR [Suspect]
     Indication: BLOOD CHOLESTEROL INCREASED
     Route: 048
     Dates: start: 2004, end: 20120927
  5. CRESTOR [Suspect]
     Indication: BLOOD CHOLESTEROL INCREASED
     Route: 048
  6. DIOVAN HCT [Concomitant]
     Route: 048
     Dates: start: 2004
  7. VASCLIN [Concomitant]
     Route: 048
     Dates: start: 2004
  8. VASTAREL [Concomitant]
     Route: 048
     Dates: start: 2004
  9. CONCOR [Concomitant]
     Route: 048
     Dates: start: 2004
  10. RIVOTRIL [Concomitant]
     Route: 048
     Dates: start: 2004
  11. TRANQUINAL [Concomitant]
     Route: 048
     Dates: start: 2004
  12. LEXAPRO [Concomitant]
     Route: 048
     Dates: start: 2004
  13. CLOPIDOGREL [Concomitant]
     Route: 048
     Dates: start: 20120921, end: 20120926
  14. BRILINTA [Concomitant]

REACTIONS (3)
  - Coronary artery occlusion [Recovered/Resolved]
  - Hypertension [Recovered/Resolved]
  - Drug ineffective [Unknown]
